FAERS Safety Report 7557293-1 (Version None)
Quarter: 2011Q2

REPORT INFORMATION
  Report Type: 
  Country: None (occurrence: None)
  Receive Date: 20110620
  Receipt Date: 20090211
  Transmission Date: 20111010
  Serious: Yes (Death, Hospitalization)
  Sender: FDA-Public Use
  Company Number: PHHY2008US28210

PATIENT
  Sex: Female

DRUGS (7)
  1. FEMARA [Suspect]
     Indication: BREAST CANCER
     Dosage: 2.5 MG, QD
     Route: 048
     Dates: start: 20070301
  2. NEURONTIN [Concomitant]
     Dosage: 300 MG, QHS
     Route: 048
  3. ZETAR [Concomitant]
     Dosage: 10 MG, QD
     Route: 048
  4. NORTRIPTYLINE [Concomitant]
     Dosage: 10 MG, QD
     Route: 048
  5. LOXAZOL [Concomitant]
     Dosage: 50 MG, QD
     Route: 048
  6. TOPROL-XL [Concomitant]
     Dosage: 12.5 MG, BID
     Route: 048
  7. ACETAMINOPHEN [Suspect]

REACTIONS (11)
  - ORGAN FAILURE [None]
  - METABOLIC ACIDOSIS [None]
  - PANCREATITIS [None]
  - OVERDOSE [None]
  - CONFUSIONAL STATE [None]
  - INTESTINAL ISCHAEMIA [None]
  - ABDOMINAL PAIN [None]
  - RECTAL HAEMORRHAGE [None]
  - HYPOTENSION [None]
  - RENAL FAILURE [None]
  - HEPATIC FAILURE [None]
